FAERS Safety Report 7528582-1 (Version None)
Quarter: 2011Q2

REPORT INFORMATION
  Report Type: 
  Country: None (occurrence: None)
  Receive Date: 20110607
  Receipt Date: 20040506
  Transmission Date: 20111010
  Serious: Yes (Death)
  Sender: FDA-Public Use
  Company Number: PHHO2004CA06543

PATIENT

DRUGS (2)
  1. CLOZARIL [Suspect]
     Dates: end: 20030101
  2. CLOZAPINE [Suspect]
     Dates: start: 20030101

REACTIONS (2)
  - LUNG NEOPLASM MALIGNANT [None]
  - HEPATITIS [None]
